FAERS Safety Report 22265002 (Version 1)
Quarter: 2023Q2

REPORT INFORMATION
  Report Type: Report from Study
  Country: RS (occurrence: RS)
  Receive Date: 20230428
  Receipt Date: 20230428
  Transmission Date: 20230721
  Serious: Yes (Other)
  Sender: FDA-Public Use
  Company Number: RS-UCBSA-2023021683

PATIENT

DRUGS (1)
  1. LEVETIRACETAM [Suspect]
     Active Substance: LEVETIRACETAM
     Indication: Seizure
     Dosage: UNK

REACTIONS (9)
  - Acute hepatic failure [Unknown]
  - Cholestasis [Unknown]
  - Hepatic cytolysis [Unknown]
  - Hepatitis acute [Unknown]
  - Mixed liver injury [Unknown]
  - Gamma-glutamyltransferase increased [Unknown]
  - Hepatic enzyme increased [Unknown]
  - Hepatic function abnormal [Unknown]
  - Liver function test abnormal [Unknown]
